FAERS Safety Report 21372145 (Version 2)
Quarter: 2022Q4

REPORT INFORMATION
  Report Type: Spontaneous
  Country: JP (occurrence: JP)
  Receive Date: 20220923
  Receipt Date: 20221104
  Transmission Date: 20230113
  Serious: Yes (Other)
  Sender: FDA-Public Use
  Company Number: JP-ALLERGAN-2231123US

PATIENT
  Sex: Female

DRUGS (2)
  1. URSODIOL [Suspect]
     Active Substance: URSODIOL
     Indication: Product used for unknown indication
     Dosage: 600 MG, QD
     Route: 048
  2. URSODIOL [Suspect]
     Active Substance: URSODIOL
     Dosage: 100 MG, TID
     Route: 048

REACTIONS (2)
  - Dementia [Unknown]
  - Accidental overdose [Unknown]
